FAERS Safety Report 23388764 (Version 1)
Quarter: 2024Q1

REPORT INFORMATION
  Report Type: Spontaneous
  Country: ES (occurrence: ES)
  Receive Date: 20240110
  Receipt Date: 20240110
  Transmission Date: 20240409
  Serious: Yes (Other)
  Sender: FDA-Public Use
  Company Number: ES-PFM-2023-07235

PATIENT
  Age: 88 Year
  Sex: Female

DRUGS (13)
  1. METHOTREXATE [Suspect]
     Active Substance: METHOTREXATE
     Indication: Necrotising scleritis
     Dosage: 7.5 MILLIGRAM, QW
     Route: 058
  2. METHOTREXATE [Suspect]
     Active Substance: METHOTREXATE
     Dosage: 12.5 MILLIGRAM, QW
     Route: 058
  3. PREDNISONE [Suspect]
     Active Substance: PREDNISONE
     Indication: Necrotising scleritis
     Dosage: 30 MILLIGRAM, QD
     Route: 065
  4. PREDNISONE [Suspect]
     Active Substance: PREDNISONE
     Dosage: 10 MILLIGRAM, QD
     Route: 065
  5. PREDNISONE [Suspect]
     Active Substance: PREDNISONE
     Dosage: 7.5 MILLIGRAM, QD
     Route: 065
  6. DOXYCYCLINE [Suspect]
     Active Substance: DOXYCYCLINE
     Indication: Necrotising scleritis
     Dosage: 100 MILLIGRAM, BID
     Route: 065
  7. ATROPINE [Suspect]
     Active Substance: ATROPINE\ATROPINE SULFATE
     Indication: Necrotising scleritis
     Dosage: UNK UNK, BID
     Route: 065
  8. MOXIFLOXACIN [Suspect]
     Active Substance: MOXIFLOXACIN
     Indication: Necrotising scleritis
     Dosage: UNK UNK, Q4H
     Route: 065
  9. TOBRAMYCIN AND DEXAMETHASONE [Suspect]
     Active Substance: DEXAMETHASONE\TOBRAMYCIN
     Indication: Necrotising scleritis
     Dosage: UNK UNK, Q8H
     Route: 065
  10. METHYLPREDNISOLONE [Suspect]
     Active Substance: METHYLPREDNISOLONE
     Indication: Necrotising scleritis
     Dosage: 60 MILLIGRAM, Q3D (DAILY DOSE OF 60 MG FOR THREE DAYS (1MG/ KG/DAY))
     Route: 065
  11. METHYLPREDNISOLONE [Suspect]
     Active Substance: METHYLPREDNISOLONE
     Dosage: 90 MILLIGRAM, Q3D (90 MG FOR THREE DAYS BOLUSES (1.5MG/ KG/DAY))
     Route: 042
  12. ADALIMUMAB [Concomitant]
     Active Substance: ADALIMUMAB\ISOPROPYL ALCOHOL
     Indication: Inflammation
     Dosage: 40 MILLIGRAM, EVERY SIX WEEKS
     Route: 058
  13. ADALIMUMAB [Concomitant]
     Active Substance: ADALIMUMAB\ISOPROPYL ALCOHOL
     Dosage: 80 MILLIGRAM
     Route: 058

REACTIONS (5)
  - Scleritis [Unknown]
  - Condition aggravated [Unknown]
  - Blood glucose increased [Unknown]
  - Off label use [Unknown]
  - Product use in unapproved indication [Unknown]
